FAERS Safety Report 10680987 (Version 2)
Quarter: 2014Q4

REPORT INFORMATION
  Report Type: Report from Study
  Country: US (occurrence: US)
  Receive Date: 20141229
  Receipt Date: 20141229
  Transmission Date: 20150529
  Serious: Yes (Hospitalization)
  Sender: FDA-Public Use
  Company Number: US-BAYER-2014-182904

PATIENT
  Age: 78 Year
  Sex: Male

DRUGS (1)
  1. NEXAVAR [Suspect]
     Active Substance: SORAFENIB
     Indication: HEPATOCELLULAR CARCINOMA
     Dosage: 200 MG, BID
     Route: 048
     Dates: start: 20141201, end: 20141211

REACTIONS (5)
  - Adverse event [None]
  - Oedema peripheral [None]
  - Pain [None]
  - Abdominal distension [None]
  - Dysphonia [None]

NARRATIVE: CASE EVENT DATE: 20141201
